FAERS Safety Report 9778186 (Version 1)
Quarter: 2013Q4

REPORT INFORMATION
  Report Type: Spontaneous
  Country: MX (occurrence: MX)
  Receive Date: 20131223
  Receipt Date: 20131223
  Transmission Date: 20140711
  Serious: Yes (Hospitalization, Other)
  Sender: FDA-Public Use
  Company Number: MX-AMGEN-MEXSP2013089713

PATIENT
  Age: 32 Year
  Sex: Male

DRUGS (6)
  1. NEUPOGEN [Suspect]
     Indication: PRODUCT USED FOR UNKNOWN INDICATION
     Dosage: 300 MUG, UNK (CYCLE 2)
     Route: 065
  2. NEUPOGEN [Suspect]
     Dosage: 300 UNK, CYCLE 3 (10 DOSES WERE ADMINISTERED) DAY 5 AND 15
     Route: 065
  3. CYTARABINE [Suspect]
     Indication: PRODUCT USED FOR UNKNOWN INDICATION
     Dosage: 1.5 UNK, DAY 1 - 4 EVERY 4 WEEKS
     Route: 065
  4. CYTARABINE [Suspect]
     Dosage: 2 G, UNK, DAY 1 - 4 EVERY 4 WEEKS
     Route: 065
  5. ETOPOSIDE [Suspect]
     Indication: PRODUCT USED FOR UNKNOWN INDICATION
     Dosage: UNK, DAY 1 - 4 EVERY 4 WEEKS
     Route: 065
  6. DOXORUBICIN [Suspect]
     Indication: PRODUCT USED FOR UNKNOWN INDICATION
     Dosage: 60 MG, UNK DAY 1 - 3 EVERY 4 WEEKS
     Route: 065

REACTIONS (2)
  - Febrile neutropenia [Unknown]
  - Neutropenia [Unknown]
